FAERS Safety Report 20567154 (Version 5)
Quarter: 2022Q3

REPORT INFORMATION
  Report Type: Spontaneous
  Country: ES (occurrence: ES)
  Receive Date: 20220308
  Receipt Date: 20220929
  Transmission Date: 20221027
  Serious: Yes (Death, Hospitalization, Other)
  Sender: FDA-Public Use
  Company Number: ES-Accord-239065

PATIENT
  Age: 76 Year
  Sex: Female
  Weight: 51.3 kg

DRUGS (47)
  1. OXALIPLATIN [Suspect]
     Active Substance: OXALIPLATIN
     Indication: Diffuse large B-cell lymphoma
     Dosage: (REGIMEN: 1, DOSE DELAYED)
     Route: 042
  2. OXALIPLATIN [Suspect]
     Active Substance: OXALIPLATIN
     Dosage: 100 MG/M2 (EVERY 2 WEEKS)
     Route: 042
     Dates: start: 20210810, end: 20210810
  3. OXALIPLATIN [Suspect]
     Active Substance: OXALIPLATIN
     Dosage: 100 MG/M2 (EVERY 2 WEEKS)
     Route: 042
     Dates: start: 20210831
  4. GEMCITABINE HYDROCHLORIDE [Suspect]
     Active Substance: GEMCITABINE HYDROCHLORIDE
     Indication: Diffuse large B-cell lymphoma
     Dosage: REGIMEN: 1, DOSE DELAYED
  5. GEMCITABINE HYDROCHLORIDE [Suspect]
     Active Substance: GEMCITABINE HYDROCHLORIDE
     Dosage: 100 MG/M2 (EVERY 2 WEEKS)
     Route: 042
     Dates: start: 20210810, end: 20210810
  6. GEMCITABINE HYDROCHLORIDE [Suspect]
     Active Substance: GEMCITABINE HYDROCHLORIDE
     Dosage: 100 MG/M2 (EVERY 2 WEEKS)
     Route: 042
     Dates: start: 20210831, end: 20210831
  7. EPCORITAMAB [Suspect]
     Active Substance: EPCORITAMAB
     Dosage: 48 MG, WEEKLY (FULL DOSE)
     Route: 058
     Dates: start: 20210831
  8. EPCORITAMAB [Suspect]
     Active Substance: EPCORITAMAB
     Dosage: 0.8 MG, SINGLE (INTERMEDIATE DOSE)
     Route: 058
     Dates: start: 20210817, end: 20210817
  9. EPCORITAMAB [Suspect]
     Active Substance: EPCORITAMAB
     Dosage: 0.16 MG, SINGLE(PRIMING DOSE: 0.16 MILLIGRAM, SINGLE) (DOSE DELAYED)
     Route: 058
     Dates: start: 20210810, end: 20210810
  10. ACETAMINOPHEN [Concomitant]
     Active Substance: ACETAMINOPHEN
     Dosage: UNK
     Dates: start: 20210817, end: 20210907
  11. DEXCHLORPHENIRAMINE MALEATE [Concomitant]
     Active Substance: DEXCHLORPHENIRAMINE MALEATE
     Dosage: 5 MG
     Route: 042
     Dates: start: 20210817, end: 20210907
  12. LORAZEPAM [Concomitant]
     Active Substance: LORAZEPAM
     Dosage: UNK
     Dates: start: 20210420
  13. ALLOPURINOL [Concomitant]
     Active Substance: ALLOPURINOL
     Dosage: UNK
     Dates: start: 202102
  14. SULFAMETHOXAZOLE\TRIMETHOPRIM [Concomitant]
     Active Substance: SULFAMETHOXAZOLE\TRIMETHOPRIM
     Dosage: UNK
     Dates: start: 202102
  15. MAGNESIUM [Concomitant]
     Active Substance: MAGNESIUM
     Dosage: UNK
     Dates: start: 202107
  16. MAGNESIUM [Concomitant]
     Active Substance: MAGNESIUM
     Dosage: UNK
     Dates: start: 20210309
  17. FUROSEMIDE [Concomitant]
     Active Substance: FUROSEMIDE
     Dosage: UNK
     Dates: start: 20210810, end: 20210906
  18. FUROSEMIDE [Concomitant]
     Active Substance: FUROSEMIDE
     Dosage: UNK
     Dates: start: 20210813, end: 20210815
  19. METILPREDNISOLONA [METHYLPREDNISOLONE ACETATE] [Concomitant]
     Dosage: 100 MG
     Route: 042
     Dates: start: 20210811, end: 20210910
  20. DEXCHLORPHENIRAMIN [DEXCHLORPHENIRAMINE] [Concomitant]
     Dosage: UNK
     Dates: start: 20210914, end: 20210914
  21. FLUCONAZOLE [Concomitant]
     Active Substance: FLUCONAZOLE
     Dosage: UNK
     Dates: start: 20210903, end: 20210912
  22. OMEPRAZOLE [Concomitant]
     Active Substance: OMEPRAZOLE
     Dosage: UNK
     Dates: start: 20210420
  23. OMEPRAZOLE [Concomitant]
     Active Substance: OMEPRAZOLE
     Dosage: UNK
     Dates: start: 202102
  24. AMLODIPINE BESYLATE [Concomitant]
     Active Substance: AMLODIPINE BESYLATE
     Dosage: UNK
     Dates: start: 202102
  25. AMLODIPINE BESYLATE [Concomitant]
     Active Substance: AMLODIPINE BESYLATE
     Dosage: UNK
     Dates: start: 20210905, end: 202109
  26. BEMIPARIN SODIUM [Concomitant]
     Active Substance: BEMIPARIN SODIUM
     Dosage: UNK
     Dates: start: 20210202
  27. OSTINE [Concomitant]
     Dosage: UNK
     Dates: start: 20210825, end: 20210906
  28. POTASSIUM CHLORIDE [Concomitant]
     Active Substance: POTASSIUM CHLORIDE
     Dosage: UNK
     Dates: start: 20210826, end: 20210828
  29. FILGRASTIM [Concomitant]
     Active Substance: FILGRASTIM
     Dosage: UNK
     Dates: start: 20210816, end: 20210816
  30. SODIUM BICARBONATE [Concomitant]
     Active Substance: SODIUM BICARBONATE
     Dosage: UNK
     Dates: start: 20210903, end: 20210905
  31. POTASSIUM PHOSPHATES [Concomitant]
     Active Substance: POTASSIUM PHOSPHATE, DIBASIC\POTASSIUM PHOSPHATE, MONOBASIC
     Dosage: UNK
     Dates: start: 20210824, end: 20210826
  32. PANTOPRAZOLE [Concomitant]
     Active Substance: PANTOPRAZOLE
     Dosage: UNK
     Dates: start: 20210816, end: 20210819
  33. PREDNISONE [Concomitant]
     Active Substance: PREDNISONE
     Dosage: 50 MG
     Route: 048
     Dates: start: 20210907, end: 20210910
  34. LEVOFLOXACIN [Concomitant]
     Active Substance: LEVOFLOXACIN
     Dosage: UNK
     Dates: start: 20210903, end: 20210905
  35. RASBURICASE [Concomitant]
     Active Substance: RASBURICASE
     Dosage: UNK
     Dates: start: 20210810, end: 20210907
  36. SUPLECAL [CALCIUM CARBONATE] [Concomitant]
     Dosage: UNK
     Dates: start: 20210810, end: 20210826
  37. ALBUMIN HUMAN [Concomitant]
     Active Substance: ALBUMIN HUMAN
     Dosage: UNK
     Dates: start: 20210810, end: 20210906
  38. CALCIUM CHLORIDE [Concomitant]
     Active Substance: CALCIUM CHLORIDE
     Dosage: UNK
     Dates: start: 20210901, end: 20210905
  39. TRIMETHOPRIM [Concomitant]
     Active Substance: TRIMETHOPRIM
     Dosage: UNK
     Dates: start: 20210810, end: 20210822
  40. ONDANSETRON HYDROCHLORIDE [Concomitant]
     Active Substance: ONDANSETRON HYDROCHLORIDE
     Dosage: UNK
     Dates: start: 20210810, end: 20210902
  41. TEICOPLANIN [Concomitant]
     Active Substance: TEICOPLANIN
     Dosage: UNK
     Dates: start: 20210902, end: 20210902
  42. MEPERIDINE [Concomitant]
     Active Substance: MEPERIDINE
     Dosage: UNK
     Dates: start: 20210902, end: 20210902
  43. LOSARTAN [Concomitant]
     Active Substance: LOSARTAN
     Dosage: UNK
     Dates: start: 20210904, end: 202109
  44. SULFAMETHOXAZOLE [Concomitant]
     Active Substance: SULFAMETHOXAZOLE
     Dosage: UNK
     Dates: start: 20210810, end: 20210822
  45. CALCIUM CARBONATE [Concomitant]
     Active Substance: CALCIUM CARBONATE
     Dosage: UNK
     Dates: start: 20210813, end: 20210822
  46. SULMETIN [Concomitant]
     Dosage: UNK
     Dates: start: 20210816, end: 20210906
  47. METOCLOPRAMIDE [Concomitant]
     Active Substance: METOCLOPRAMIDE
     Dosage: UNK
     Dates: start: 20210816, end: 20210915

REACTIONS (4)
  - Neoplasm progression [Fatal]
  - Febrile neutropenia [Recovered/Resolved]
  - Cytokine release syndrome [Recovered/Resolved]
  - Off label use [Unknown]

NARRATIVE: CASE EVENT DATE: 20210823
